FAERS Safety Report 7102633-0 (Version None)
Quarter: 2010Q4

REPORT INFORMATION
  Report Type: 
  Country: None (occurrence: None)
  Receive Date: 20101115
  Receipt Date: 20101105
  Transmission Date: 20110411
  Serious: Yes (Hospitalization)
  Sender: FDA-Public Use
  Company Number: B0683946A

PATIENT
  Sex: Male

DRUGS (3)
  1. AVANDAMET [Suspect]
     Route: 065
  2. GLICLAZIDE [Concomitant]
  3. TEGRETOL [Concomitant]

REACTIONS (4)
  - GAIT DISTURBANCE [None]
  - ILL-DEFINED DISORDER [None]
  - MUSCLE SPASMS [None]
  - PAIN [None]
